FAERS Safety Report 7412415-8 (Version None)
Quarter: 2011Q2

REPORT INFORMATION
  Report Type: 
  Country: None (occurrence: None)
  Receive Date: 20110405
  Receipt Date: 20110318
  Transmission Date: 20111010
  Serious: Yes (Other)
  Sender: FDA-Public Use
  Company Number: AUR-APL-2011-00892

PATIENT
  Age: 61 Year
  Sex: Female
  Weight: 77.09 kg

DRUGS (3)
  1. HYDROCHLOROTHIAZIDE [Suspect]
     Indication: BLOOD PRESSURE ABNORMAL
  2. ALPRAZOLAM [Suspect]
     Indication: RELAXATION THERAPY
     Dosage: 0.5MG
     Dates: start: 20110101
  3. ALPRAZOLAM [Suspect]
     Indication: RELAXATION THERAPY
     Dosage: 0.25MG-QID
     Dates: end: 20110301

REACTIONS (11)
  - HEART RATE INCREASED [None]
  - CLUMSINESS [None]
  - BONE DENSITY DECREASED [None]
  - LIMB DISCOMFORT [None]
  - FEELING ABNORMAL [None]
  - DYSPNOEA [None]
  - PSYCHOMOTOR HYPERACTIVITY [None]
  - DRUG INTOLERANCE [None]
  - ABDOMINAL DISTENSION [None]
  - BLOOD PRESSURE INCREASED [None]
  - DRUG HYPERSENSITIVITY [None]
